FAERS Safety Report 13302911 (Version 1)
Quarter: 2017Q1

REPORT INFORMATION
  Report Type: Spontaneous
  Country: JP (occurrence: JP)
  Receive Date: 20170307
  Receipt Date: 20170307
  Transmission Date: 20170428
  Serious: Yes (Life-Threatening, Hospitalization, Other)
  Sender: FDA-Public Use
  Company Number: JP-ELI_LILLY_AND_COMPANY-JP201612002542

PATIENT
  Age: 65 Year
  Sex: Male
  Weight: 58.9 kg

DRUGS (4)
  1. PACLITAXEL. [Concomitant]
     Active Substance: PACLITAXEL
     Indication: ADENOCARCINOMA GASTRIC
     Dosage: 145 MG, OTHER
     Route: 042
     Dates: start: 20160912, end: 20161128
  2. LYRICA [Concomitant]
     Active Substance: PREGABALIN
     Indication: HYPOAESTHESIA
     Dosage: 75 MG, BID
     Route: 048
     Dates: start: 20161003
  3. GOSHAJINKIGAN [Concomitant]
     Active Substance: HERBALS
     Indication: HYPOAESTHESIA
     Dosage: 1 DF, TID
     Route: 048
     Dates: start: 20161114
  4. CYRAMZA [Suspect]
     Active Substance: RAMUCIRUMAB
     Indication: ADENOCARCINOMA GASTRIC
     Dosage: 570 MG, OTHER
     Route: 042
     Dates: start: 20160912, end: 20161128

REACTIONS (4)
  - Malignant neoplasm progression [Unknown]
  - Peritonitis [Unknown]
  - Hyperkalaemia [Unknown]
  - Intestinal perforation [Recovered/Resolved with Sequelae]

NARRATIVE: CASE EVENT DATE: 20161129
